FAERS Safety Report 14099098 (Version 1)
Quarter: 2017Q4

REPORT INFORMATION
  Report Type: Spontaneous
  Country: US (occurrence: US)
  Receive Date: 20171017
  Receipt Date: 20171017
  Transmission Date: 20180321
  Serious: No
  Sender: FDA-Public Use
  Company Number: US-ASTRAZENECA-2017SF05709

PATIENT
  Age: 74 Year
  Sex: Male
  Weight: 82.1 kg

DRUGS (5)
  1. PREDNISONE. [Concomitant]
     Active Substance: PREDNISONE
     Indication: BRONCHITIS CHRONIC
     Route: 048
     Dates: start: 2010
  2. PULMICORT RESPULES [Suspect]
     Active Substance: BUDESONIDE
     Indication: BRONCHITIS CHRONIC
     Dosage: .5 MG/2ML, TWO TIMES A DAY
     Route: 055
     Dates: start: 2011
  3. PULMICORT RESPULES [Suspect]
     Active Substance: BUDESONIDE
     Indication: ASTHMA
     Dosage: .5 MG/2ML, TWO TIMES A DAY
     Route: 055
     Dates: start: 2011
  4. OTC PEPCID [Concomitant]
     Indication: DYSPEPSIA
     Dosage: AS REQUIRED
     Route: 048
     Dates: start: 2010
  5. PREDNISONE. [Concomitant]
     Active Substance: PREDNISONE
     Indication: ASTHMA
     Route: 048
     Dates: start: 2010

REACTIONS (3)
  - Off label use [Unknown]
  - Aphonia [Unknown]
  - Product use issue [Unknown]

NARRATIVE: CASE EVENT DATE: 2011
